FAERS Safety Report 8475644-0 (Version None)
Quarter: 2012Q2

REPORT INFORMATION
  Report Type: 
  Country: None (occurrence: None)
  Receive Date: 20120628
  Receipt Date: 20120619
  Transmission Date: 20120825
  Serious: Yes (Hospitalization)
  Sender: FDA-Public Use
  Company Number: US-ASTRAZENECA-2012SE41353

PATIENT
  Age: 615 Month
  Sex: Female
  Weight: 78 kg

DRUGS (4)
  1. REMERON [Concomitant]
  2. LITHIUM CARBONATE [Concomitant]
  3. SEROQUEL [Suspect]
     Indication: BIPOLAR I DISORDER
     Route: 048
     Dates: start: 20100101
  4. KLONOPIN [Concomitant]

REACTIONS (3)
  - CONVULSION [None]
  - DRUG DOSE OMISSION [None]
  - DEPRESSION [None]
